FAERS Safety Report 8442843-3 (Version None)
Quarter: 2012Q2

REPORT INFORMATION
  Report Type: 
  Country: None (occurrence: None)
  Receive Date: 20120323
  Receipt Date: 20110712
  Transmission Date: 20120825
  Serious: Yes (Other)
  Sender: FDA-Public Use
  Company Number: 163-21880-11061461

PATIENT
  Age: 64 Year
  Sex: Male

DRUGS (1)
  1. REVLIMID [Suspect]
     Indication: MULTIPLE MYELOMA
     Dosage: 25 MG, DAILY DAYS 1-21/28 DAY CYCLE, PO
     Route: 048
     Dates: start: 20110503

REACTIONS (5)
  - SKIN DISCOLOURATION [None]
  - DRY SKIN [None]
  - RASH [None]
  - RECTAL HAEMORRHAGE [None]
  - EPISTAXIS [None]
